FAERS Safety Report 21639725 (Version 1)
Quarter: 2022Q4

REPORT INFORMATION
  Report Type: Report from Study
  Country: US (occurrence: US)
  Receive Date: 20221124
  Receipt Date: 20221124
  Transmission Date: 20230113
  Serious: No
  Sender: FDA-Public Use
  Company Number: US-ABBVIE-4168470

PATIENT
  Age: 32 Year
  Sex: Female
  Weight: 81.646 kg

DRUGS (5)
  1. HUMIRA [Suspect]
     Active Substance: ADALIMUMAB
     Indication: Rheumatoid arthritis
     Route: 058
  2. PRISTIQ EXTENDED-RELEASE [Concomitant]
     Active Substance: DESVENLAFAXINE SUCCINATE
     Indication: Anxiety
  3. CELEBREX [Concomitant]
     Active Substance: CELECOXIB
     Indication: Pain
  4. FOLIC ACID [Concomitant]
     Active Substance: FOLIC ACID
     Indication: Product used for unknown indication
  5. METHOTREXATE [Concomitant]
     Active Substance: METHOTREXATE
     Indication: Sjogren^s syndrome

REACTIONS (5)
  - COVID-19 [Recovered/Resolved]
  - Injection site papule [Recovered/Resolved]
  - Injection site urticaria [Recovered/Resolved]
  - Injection site pruritus [Unknown]
  - Injection site erythema [Recovered/Resolved]

NARRATIVE: CASE EVENT DATE: 20210616
